FAERS Safety Report 17143065 (Version 3)
Quarter: 2020Q2

REPORT INFORMATION
  Report Type: Report from Study
  Country: None (occurrence: US)
  Receive Date: 20191211
  Receipt Date: 20200409
  Transmission Date: 20200713
  Serious: Yes (Other)
  Sender: FDA-Public Use
  Company Number: US-ABBVIE-19P-163-2823472-00

PATIENT
  Age: 44 Year
  Sex: Female
  Weight: 81.72 kg

DRUGS (2)
  1. LUPRON [Suspect]
     Active Substance: LEUPROLIDE ACETATE
     Indication: OVARIAN REMNANT SYNDROME
     Route: 030
     Dates: start: 20180330, end: 20180330
  2. ORILISSA [Suspect]
     Active Substance: ELAGOLIX SODIUM
     Indication: OVARIAN REMNANT SYNDROME
     Dosage: CUT IN HALF
     Route: 046
     Dates: start: 201906, end: 201909

REACTIONS (12)
  - Suicide attempt [Recovered/Resolved]
  - Influenza like illness [Recovered/Resolved]
  - Arthralgia [Recovered/Resolved]
  - Influenza like illness [Recovered/Resolved]
  - Arthralgia [Unknown]
  - Depression [Recovered/Resolved]
  - Suicidal ideation [Recovered/Resolved]
  - Nausea [Unknown]
  - Off label use [Unknown]
  - Haemorrhage [Not Recovered/Not Resolved]
  - Bone pain [Unknown]
  - Drug intolerance [Recovered/Resolved]

NARRATIVE: CASE EVENT DATE: 201806
